FAERS Safety Report 16284935 (Version 2)
Quarter: 2020Q2

REPORT INFORMATION
  Report Type: Spontaneous
  Country: US (occurrence: US)
  Receive Date: 20190508
  Receipt Date: 20200417
  Transmission Date: 20200713
  Serious: Yes (Death, Other)
  Sender: FDA-Public Use
  Company Number: US-ASTRAZENECA-2019SE61414

PATIENT
  Age: 529 Month
  Sex: Male
  Weight: 115.2 kg

DRUGS (61)
  1. PRILOSEC [Suspect]
     Active Substance: OMEPRAZOLE MAGNESIUM
     Indication: GASTROOESOPHAGEAL REFLUX DISEASE
     Route: 048
     Dates: start: 20040702, end: 20070521
  2. PRILOSEC [Suspect]
     Active Substance: OMEPRAZOLE MAGNESIUM
     Indication: GASTROOESOPHAGEAL REFLUX DISEASE
     Dosage: GENERIC
     Route: 065
     Dates: start: 20080815, end: 20100401
  3. PROTONIX [Suspect]
     Active Substance: PANTOPRAZOLE SODIUM
     Indication: GASTROOESOPHAGEAL REFLUX DISEASE
     Route: 065
     Dates: start: 200109, end: 201608
  4. PROTONIX [Suspect]
     Active Substance: PANTOPRAZOLE SODIUM
     Indication: GASTROOESOPHAGEAL REFLUX DISEASE
     Route: 065
     Dates: start: 20010914, end: 20011014
  5. CYCLOBENZAPRINE. [Concomitant]
     Active Substance: CYCLOBENZAPRINE
     Indication: MUSCLE SPASMS
     Route: 065
     Dates: start: 2007
  6. CEFADROXIL. [Concomitant]
     Active Substance: CEFADROXIL
     Indication: ANTIBIOTIC THERAPY
     Route: 065
     Dates: start: 2008
  7. HECTOROL [Concomitant]
     Active Substance: DOXERCALCIFEROL
     Indication: DIALYSIS
     Route: 065
     Dates: start: 2009
  8. ALLOPURINOL. [Concomitant]
     Active Substance: ALLOPURINOL
     Indication: GOUT
     Route: 065
     Dates: start: 2009, end: 2010
  9. AZITHROMYCIN ANHYDROUS. [Concomitant]
     Active Substance: AZITHROMYCIN ANHYDROUS
     Indication: ANTIBIOTIC THERAPY
     Route: 065
     Dates: start: 2010, end: 2016
  10. AZELASTINE. [Concomitant]
     Active Substance: AZELASTINE HYDROCHLORIDE
     Route: 065
     Dates: start: 20160728
  11. AMITRIPTYLINE [Concomitant]
     Active Substance: AMITRIPTYLINE
     Route: 065
     Dates: start: 20121106
  12. RENVELA [Concomitant]
     Active Substance: SEVELAMER CARBONATE
     Route: 065
     Dates: start: 20121112
  13. FINASTERIDE. [Concomitant]
     Active Substance: FINASTERIDE
     Route: 065
     Dates: start: 20130405
  14. HYDROCODONE [Concomitant]
     Active Substance: HYDROCODONE
     Indication: PAIN
     Route: 065
     Dates: start: 2007, end: 2016
  15. PROMETHAZINE [Concomitant]
     Active Substance: PROMETHAZINE HYDROCHLORIDE
     Indication: MOTION SICKNESS
     Route: 065
     Dates: start: 2007
  16. LEVAQUIN [Concomitant]
     Active Substance: LEVOFLOXACIN
     Indication: ANTIBIOTIC THERAPY
     Route: 065
     Dates: start: 2009, end: 2016
  17. VENTOLIN/ALBUTEROL [Concomitant]
     Indication: BRONCHOSPASM
     Route: 065
     Dates: start: 2014, end: 2016
  18. MINOCYCLINE [Concomitant]
     Active Substance: MINOCYCLINE HYDROCHLORIDE
     Indication: ANTIBIOTIC THERAPY
     Route: 065
     Dates: start: 2014, end: 2016
  19. VOLTAREN [Concomitant]
     Active Substance: DICLOFENAC SODIUM
     Route: 065
     Dates: start: 20090212
  20. CEFDINIR. [Concomitant]
     Active Substance: CEFDINIR
     Route: 065
     Dates: start: 20140730
  21. SODIUM BICARBONATE. [Concomitant]
     Active Substance: SODIUM BICARBONATE
     Route: 065
  22. NEXIUM [Suspect]
     Active Substance: ESOMEPRAZOLE MAGNESIUM
     Indication: GASTROOESOPHAGEAL REFLUX DISEASE
     Route: 048
     Dates: start: 20070828, end: 20160828
  23. PREVACID [Suspect]
     Active Substance: LANSOPRAZOLE
     Indication: GASTROOESOPHAGEAL REFLUX DISEASE
     Route: 065
     Dates: start: 20040629, end: 20040729
  24. COLCHICINE. [Concomitant]
     Active Substance: COLCHICINE
     Indication: GOUT
     Route: 065
     Dates: start: 2009, end: 2012
  25. CARISOPRODOL. [Concomitant]
     Active Substance: CARISOPRODOL
     Indication: MUSCLE SPASMS
     Route: 065
     Dates: start: 2012, end: 2016
  26. FLOMAX/TAMSULOSIN [Concomitant]
     Indication: URINARY RETENTION
     Route: 065
     Dates: start: 2012, end: 2016
  27. AMLODIPINE [Concomitant]
     Active Substance: AMLODIPINE BESYLATE
     Indication: BLOOD PRESSURE MEASUREMENT
     Route: 065
     Dates: start: 2014
  28. SULFATRIM/BACTRIM [Concomitant]
     Indication: ANTIBIOTIC THERAPY
     Route: 065
     Dates: start: 2015, end: 2016
  29. DIOVAN [Concomitant]
     Active Substance: VALSARTAN
     Route: 065
     Dates: start: 20080521
  30. FERROUS SULFATE. [Concomitant]
     Active Substance: FERROUS SULFATE
     Route: 065
  31. NIFEDIAC CC [Concomitant]
     Active Substance: NIFEDIPINE
     Route: 065
  32. IMDUR [Concomitant]
     Active Substance: ISOSORBIDE MONONITRATE
     Route: 065
  33. DOXAZOSIN [Concomitant]
     Active Substance: DOXAZOSIN MESYLATE
     Route: 065
     Dates: start: 20121212
  34. OXYBUTYNIN. [Concomitant]
     Active Substance: OXYBUTYNIN CHLORIDE
     Route: 065
     Dates: start: 20120227
  35. MUPIROCIN. [Concomitant]
     Active Substance: MUPIROCIN
     Route: 065
     Dates: start: 20100401
  36. CEPHALEXIN. [Concomitant]
     Active Substance: CEPHALEXIN
     Route: 065
     Dates: start: 20160329
  37. ATARAX [Concomitant]
     Active Substance: HYDROXYZINE HYDROCHLORIDE
     Route: 065
  38. NEXIUM [Suspect]
     Active Substance: ESOMEPRAZOLE MAGNESIUM
     Indication: GASTROOESOPHAGEAL REFLUX DISEASE
     Route: 048
     Dates: start: 200109, end: 201608
  39. METOPROLOL. [Concomitant]
     Active Substance: METOPROLOL
     Indication: BLOOD PRESSURE MEASUREMENT
     Route: 065
     Dates: start: 2009, end: 2016
  40. HYDROCO/APAP [Concomitant]
     Active Substance: ACETAMINOPHEN\HYDROCODONE
     Route: 065
     Dates: start: 20080620
  41. NAPROXEN. [Concomitant]
     Active Substance: NAPROXEN
     Route: 065
     Dates: start: 20150710
  42. PERCOCET [Concomitant]
     Active Substance: ACETAMINOPHEN\OXYCODONE HYDROCHLORIDE
     Route: 065
  43. PRILOSEC [Suspect]
     Active Substance: OMEPRAZOLE MAGNESIUM
     Indication: GASTROOESOPHAGEAL REFLUX DISEASE
     Route: 048
     Dates: start: 200109, end: 201608
  44. CIPRO [Concomitant]
     Active Substance: CIPROFLOXACIN HYDROCHLORIDE
     Indication: ANTIBIOTIC THERAPY
     Route: 065
     Dates: start: 2008, end: 2015
  45. CIALIS [Concomitant]
     Active Substance: TADALAFIL
     Indication: BLOOD PRESSURE MEASUREMENT
     Route: 065
     Dates: start: 2008, end: 2011
  46. CARISOPRODOL. [Concomitant]
     Active Substance: CARISOPRODOL
     Indication: PAIN
     Route: 065
     Dates: start: 2012, end: 2016
  47. VALACYCLOVIR [Concomitant]
     Active Substance: VALACYCLOVIR HYDROCHLORIDE
     Indication: VIRAL INFECTION
     Route: 065
     Dates: start: 2016
  48. LORATADINE. [Concomitant]
     Active Substance: LORATADINE
     Route: 065
     Dates: start: 20080107
  49. METHYLPREDNISOLONE. [Concomitant]
     Active Substance: METHYLPREDNISOLONE
     Route: 065
     Dates: start: 20071213
  50. PROMETH/CODO [Concomitant]
     Route: 065
     Dates: start: 20090504
  51. CALCIUM ACETATE. [Concomitant]
     Active Substance: CALCIUM ACETATE
     Route: 065
     Dates: start: 20091218
  52. CLINDAMYCIN. [Concomitant]
     Active Substance: CLINDAMYCIN
     Route: 065
     Dates: start: 20151229
  53. NEXIUM [Suspect]
     Active Substance: ESOMEPRAZOLE MAGNESIUM
     Indication: GASTROOESOPHAGEAL REFLUX DISEASE
     Route: 048
     Dates: start: 20081013
  54. PREVACID [Suspect]
     Active Substance: LANSOPRAZOLE
     Indication: GASTROOESOPHAGEAL REFLUX DISEASE
     Route: 065
     Dates: start: 200109, end: 201608
  55. PREDNISONE. [Concomitant]
     Active Substance: PREDNISONE
     Indication: STEROID THERAPY
     Route: 065
     Dates: start: 2007, end: 2016
  56. HYDRALAZINE [Concomitant]
     Active Substance: HYDRALAZINE HYDROCHLORIDE
     Indication: BLOOD PRESSURE MEASUREMENT
     Route: 065
     Dates: start: 2009, end: 2015
  57. OXYCODONE [Concomitant]
     Active Substance: OXYCODONE
     Indication: PAIN
     Route: 065
     Dates: start: 2009, end: 2016
  58. ZANTAC [Concomitant]
     Active Substance: RANITIDINE HYDROCHLORIDE
     Route: 065
  59. FLUTICASONE. [Concomitant]
     Active Substance: FLUTICASONE
     Route: 065
     Dates: start: 20121204
  60. AVELOX [Concomitant]
     Active Substance: MOXIFLOXACIN HYDROCHLORIDE
     Route: 065
     Dates: start: 20071203
  61. CALCITRIOL. [Concomitant]
     Active Substance: CALCITRIOL
     Route: 065
     Dates: start: 20100209

REACTIONS (7)
  - End stage renal disease [Unknown]
  - Chronic kidney disease [Unknown]
  - Renal failure [Unknown]
  - Hyperparathyroidism secondary [Unknown]
  - Brain injury [Fatal]
  - Cardiac arrest [Fatal]
  - Acute kidney injury [Unknown]

NARRATIVE: CASE EVENT DATE: 200708
